FAERS Safety Report 16473957 (Version 1)
Quarter: 2019Q2

REPORT INFORMATION
  Report Type: Spontaneous
  Country: US (occurrence: US)
  Receive Date: 20190515
  Receipt Date: 20190515
  Transmission Date: 20190711
  Serious: Yes (Other)
  Sender: FDA-Public Use
  Company Number: None

PATIENT
  Age: 62 Year
  Sex: Female

DRUGS (1)
  1. GABAPENTIN. [Suspect]
     Active Substance: GABAPENTIN
     Dates: start: 2007, end: 20170207

REACTIONS (15)
  - Hot flush [None]
  - Paraesthesia [None]
  - Photosensitivity reaction [None]
  - Product prescribing error [None]
  - Panic attack [None]
  - Paradoxical drug reaction [None]
  - Inappropriate schedule of product administration [None]
  - Dyspnoea [None]
  - Abdominal pain upper [None]
  - Middle insomnia [None]
  - Nervousness [None]
  - Suicide attempt [None]
  - Nausea [None]
  - Burning sensation [None]
  - Palpitations [None]

NARRATIVE: CASE EVENT DATE: 20170518
